FAERS Safety Report 20094636 (Version 1)
Quarter: 2021Q4

REPORT INFORMATION
  Report Type: Spontaneous
  Country: US (occurrence: US)
  Receive Date: 20211122
  Receipt Date: 20211122
  Transmission Date: 20220303
  Serious: No
  Sender: FDA-Public Use
  Company Number: US-TEVA-2021-US-1977819

PATIENT
  Age: 55 Year
  Sex: Female
  Weight: 61.23 kg

DRUGS (1)
  1. ESTRADIOL [Suspect]
     Active Substance: ESTRADIOL
     Indication: Menopause
     Route: 067
     Dates: start: 2021, end: 2021

REACTIONS (2)
  - Headache [Unknown]
  - Blood oestrogen increased [Unknown]
